FAERS Safety Report 4371969-9 (Version None)
Quarter: 2004Q2

REPORT INFORMATION
  Report Type: 
  Country: None (occurrence: None)
  Receive Date: 20040603
  Receipt Date: 20040603
  Transmission Date: 20050107
  Serious: Yes (Other)
  Sender: FDA-Public Use
  Company Number: None

PATIENT
  Age: 13 Year
  Sex: Male
  Weight: 50.3493 kg

DRUGS (3)
  1. GEODON [Suspect]
     Indication: ATTENTION DEFICIT/HYPERACTIVITY DISORDER
     Dosage: 2 TABS B.I.D. ORAL
     Route: 048
     Dates: start: 20040403, end: 20040405
  2. GEODON [Suspect]
     Indication: INTERMITTENT EXPLOSIVE DISORDER
     Dosage: 2 TABS B.I.D. ORAL
     Route: 048
     Dates: start: 20040403, end: 20040405
  3. GEODON [Suspect]
     Indication: REACTIVE ATTACHMENT DISORDER OF INFANCY OR EARLY CHILDHOOD
     Dosage: 2 TABS B.I.D. ORAL
     Route: 048
     Dates: start: 20040403, end: 20040405

REACTIONS (2)
  - PAIN IN JAW [None]
  - SWOLLEN TONGUE [None]
